FAERS Safety Report 4704892-8 (Version None)
Quarter: 2005Q2

REPORT INFORMATION
  Report Type: 
  Country: None (occurrence: None)
  Receive Date: 20050208
  Receipt Date: 20050208
  Transmission Date: 20051028
  Serious: Yes (Other)
  Sender: FDA-Public Use
  Company Number: None

PATIENT
  Age: 79 Year
  Sex: Female
  Weight: 64.8644 kg

DRUGS (1)
  1. ATENOLOL [Suspect]
     Indication: PALPITATIONS
     Dosage: 25 MG PO BID
     Route: 048
     Dates: start: 20040928, end: 20041004

REACTIONS (2)
  - DRUG EFFECT DECREASED [None]
  - THERAPEUTIC RESPONSE UNEXPECTED WITH DRUG SUBSTITUTION [None]
